FAERS Safety Report 5714572-8 (Version None)
Quarter: 2008Q2

REPORT INFORMATION
  Report Type: 
  Country: None (occurrence: None)
  Receive Date: 20080421
  Receipt Date: 20080414
  Transmission Date: 20081010
  Serious: Yes (Hospitalization)
  Sender: FDA-Public Use
  Company Number: TR-ROSEMONTLT-UKRP0001811 - 14-APR-2008

PATIENT
  Age: 75 Year
  Sex: Female

DRUGS (1)
  1. TAMOXIFEN CITRATE [Suspect]
     Indication: BREAST CANCER

REACTIONS (2)
  - ADENOCARCINOMA OF THE CERVIX [None]
  - ENDOMETRIAL CANCER [None]
